FAERS Safety Report 17884372 (Version 1)
Quarter: 2020Q2

REPORT INFORMATION
  Report Type: Spontaneous
  Country: US (occurrence: US)
  Receive Date: 20200611
  Receipt Date: 20200611
  Transmission Date: 20200714
  Serious: No
  Sender: FDA-Public Use
  Company Number: US-PFIZER INC-2020226649

PATIENT
  Age: 37 Year
  Sex: Female

DRUGS (4)
  1. IBRANCE [Suspect]
     Active Substance: PALBOCICLIB
     Indication: BREAST CANCER FEMALE
     Dosage: 100 MG, DAILY (1 DAILY FOR 21 DAYS)
     Route: 048
     Dates: start: 20200606
  2. BIOTIN [Suspect]
     Active Substance: BIOTIN
     Dosage: UNK
  3. FASLODEX [Concomitant]
     Active Substance: FULVESTRANT
     Dosage: UNK (FASLODEX 250 MG/5ML SYRINGE)
  4. BIOTENE [FLUORINE;XYLITOL] [Suspect]
     Active Substance: SODIUM FLUORIDE\SODIUM MONOFLUOROPHOSPHATE
     Dosage: UNK

REACTIONS (1)
  - Glossodynia [Unknown]
